FAERS Safety Report 4427315-5 (Version None)
Quarter: 2004Q3

REPORT INFORMATION
  Report Type: 
  Country: None (occurrence: None)
  Receive Date: 20040812
  Receipt Date: 20040726
  Transmission Date: 20050211
  Serious: Yes (Hospitalization)
  Sender: FDA-Public Use
  Company Number: PHRM2004FR02071

PATIENT
  Age: 84 Year
  Sex: Male
  Weight: 72.0312 kg

DRUGS (1)
  1. VISUDYNE [Suspect]
     Indication: RETINAL NEOVASCULARISATION
     Dosage: 5.2 ML DAILY IV
     Route: 042
     Dates: start: 20040501, end: 20040501

REACTIONS (3)
  - BACK PAIN [None]
  - HAEMATURIA [None]
  - PROSTATE CANCER RECURRENT [None]
